FAERS Safety Report 9138938 (Version 1)
Quarter: 2013Q1

REPORT INFORMATION
  Report Type: Spontaneous
  Country: IT (occurrence: IT)
  Receive Date: 20130305
  Receipt Date: 20130305
  Transmission Date: 20140127
  Serious: Yes (Hospitalization)
  Sender: FDA-Public Use
  Company Number: IT-BRISTOL-MYERS SQUIBB COMPANY-17427071

PATIENT
  Age: 54 Year
  Sex: Male

DRUGS (2)
  1. METFORMIN HCL [Suspect]
     Route: 048
     Dates: start: 20120113, end: 20130112
  2. HUMALOG [Suspect]
     Dosage: FORMULATION: 100 INJECTION?HUMALOG BASAL: 6 IU; 365 DAYS
     Route: 058
     Dates: start: 20120113, end: 20130112

REACTIONS (1)
  - Hypoglycaemic coma [Recovering/Resolving]
